FAERS Safety Report 6900136-7 (Version None)
Quarter: 2010Q3

REPORT INFORMATION
  Report Type: 
  Country: None (occurrence: None)
  Receive Date: 20100708
  Receipt Date: 20100405
  Transmission Date: 20110219
  Serious: Yes (Other)
  Sender: FDA-Public Use
  Company Number: 2010043032

PATIENT
  Age: 51 Year
  Sex: Male
  Weight: 108.8 kg

DRUGS (1)
  1. CHANTIX [Suspect]
     Indication: SMOKING CESSATION THERAPY
     Dosage: 0.5 MG, 1X/DAY, ORAL
     Route: 048
     Dates: start: 20100101, end: 20100405

REACTIONS (2)
  - PHARYNGEAL OEDEMA [None]
  - URTICARIA [None]
